FAERS Safety Report 6469837-1 (Version None)
Quarter: 2009Q4

REPORT INFORMATION
  Report Type: 
  Country: None (occurrence: None)
  Receive Date: 20091203
  Receipt Date: 20071207
  Transmission Date: 20100525
  Serious: Yes (Hospitalization, Other)
  Sender: FDA-Public Use
  Company Number: US-ELI_LILLY_AND_COMPANY-US200712001788

PATIENT
  Sex: Female

DRUGS (6)
  1. BYETTA [Suspect]
     Indication: TYPE 2 DIABETES MELLITUS
     Dosage: 5 UG, DAILY (1/D)
     Route: 058
     Dates: start: 20050101, end: 20060101
  2. BYETTA [Suspect]
     Dosage: 5 UG, 2/D
     Route: 058
     Dates: start: 20060101, end: 20060101
  3. LANTUS [Concomitant]
     Dosage: UNK, UNKNOWN
  4. METFORMIN HCL [Concomitant]
     Dosage: UNK, UNKNOWN
  5. FUROSEMIDE [Concomitant]
     Dosage: UNK, UNKNOWN
  6. PACERONE [Concomitant]
     Dosage: UNK, UNKNOWN

REACTIONS (11)
  - ANAEMIA [None]
  - AORTIC VALVE STENOSIS [None]
  - DECREASED APPETITE [None]
  - DIZZINESS [None]
  - FAECES DISCOLOURED [None]
  - GASTRITIS [None]
  - HAEMATOCHEZIA [None]
  - STAPHYLOCOCCAL BACTERAEMIA [None]
  - STREPTOCOCCAL BACTERAEMIA [None]
  - SYNCOPE [None]
  - VOMITING [None]
